FAERS Safety Report 14881352 (Version 1)
Quarter: 2018Q2

REPORT INFORMATION
  Report Type: Spontaneous
  Country: US (occurrence: US)
  Receive Date: 20180511
  Receipt Date: 20180511
  Transmission Date: 20180711
  Serious: No
  Sender: FDA-Public Use
  Company Number: US-MYLANLABS-2018M1026124

PATIENT
  Sex: Female
  Weight: 45 kg

DRUGS (3)
  1. FENTANYL TRANSDERMAL SYSTEM [Suspect]
     Active Substance: FENTANYL
     Dosage: 37.5 ?G, QH
     Route: 062
  2. FENTANYL TRANSDERMAL SYSTEM [Suspect]
     Active Substance: FENTANYL
     Dosage: 25 ?G, QH
     Route: 062
  3. FENTANYL TRANSDERMAL SYSTEM [Suspect]
     Active Substance: FENTANYL
     Indication: PAIN
     Dosage: 12 ?G, QH
     Route: 062

REACTIONS (3)
  - Application site pruritus [Not Recovered/Not Resolved]
  - Medication residue present [Not Recovered/Not Resolved]
  - Drug effect decreased [Not Recovered/Not Resolved]
